FAERS Safety Report 6908873 (Version 2)
Quarter: 2012Q4

REPORT INFORMATION
  Report Type: Report from Study
  Country: ES (occurrence: ES)
  Receive Date: 20090213
  Receipt Date: 20120912
  Transmission Date: 20130627
  Serious: Yes (Other)
  Sender: FDA-Public Use
  Company Number: ES-JNJFOC-20090201561

PATIENT
  Age: 54 Year
  Sex: Female
  Weight: 90 kg

DRUGS (2)
  1. REMICADE [Suspect]
     Indication: ARTHRITIS ENTEROPATHIC
     Route: 042
     Dates: start: 20001221
  2. REMICADE [Suspect]
     Indication: ARTHRITIS ENTEROPATHIC
     Route: 042
     Dates: start: 2009, end: 20090903

REACTIONS (3)
  - Morton^s neuroma [Not Recovered/Not Resolved]
  - Phlebitis [Unknown]
  - Cellulitis [Unknown]
